FAERS Safety Report 9515465 (Version 3)
Quarter: 2013Q3

REPORT INFORMATION
  Report Type: Spontaneous
  Country: FR (occurrence: FR)
  Receive Date: 20130911
  Receipt Date: 20130923
  Transmission Date: 20140515
  Serious: Yes (Hospitalization)
  Sender: FDA-Public Use
  Company Number: FR-PFIZER INC-2013260155

PATIENT
  Age: 87 Year
  Sex: Female

DRUGS (12)
  1. CORDARONE [Suspect]
     Indication: ATRIAL FIBRILLATION
     Dosage: 200 MG, 5/7 DAYS
     Route: 048
     Dates: start: 20130730
  2. PRADAXA [Interacting]
     Indication: THROMBOSIS PROPHYLAXIS
     Dosage: 110 MG, TWICE A DAY
     Route: 048
     Dates: start: 20130730, end: 20130808
  3. TAREG [Concomitant]
     Indication: CARDIAC FAILURE
     Dosage: UNK
  4. SPECIAFOLDINE [Concomitant]
  5. LEVOTHYROX [Concomitant]
  6. ZOLPIDEM TARTRATE [Concomitant]
  7. DONORMYL [Concomitant]
     Indication: SLEEP DISORDER
     Dosage: UNK
     Dates: start: 201307
  8. HALDOL [Concomitant]
     Dosage: UNK
     Dates: start: 20130724
  9. TRIATEC [Concomitant]
     Indication: CARDIAC FAILURE
     Dosage: UNK
     Dates: start: 20130730
  10. LASILIX [Concomitant]
     Indication: CARDIAC FAILURE
     Dosage: UNK
     Dates: start: 20130730, end: 20130802
  11. LASILIX [Concomitant]
     Dosage: 40 MG, DAILY
     Dates: start: 20130803, end: 20130807
  12. XANAX [Concomitant]
     Indication: SLEEP DISORDER
     Dosage: UNK
     Dates: start: 20130803, end: 20130807

REACTIONS (4)
  - Drug interaction [Not Recovered/Not Resolved]
  - Fall [Unknown]
  - Humerus fracture [Unknown]
  - Subdural haematoma [Not Recovered/Not Resolved]
